FAERS Safety Report 18088811 (Version 2)
Quarter: 2020Q3

REPORT INFORMATION
  Report Type: Spontaneous
  Country: US (occurrence: US)
  Receive Date: 20200729
  Receipt Date: 20200805
  Transmission Date: 20201103
  Serious: Yes (Hospitalization, Other)
  Sender: FDA-Public Use
  Company Number: US-PFIZER INC-2020287169

PATIENT
  Age: 20 Year
  Sex: Male

DRUGS (5)
  1. IBUPROFEN. [Suspect]
     Active Substance: IBUPROFEN
     Indication: TENSION HEADACHE
  2. TETRACYCLINE [Concomitant]
     Active Substance: TETRACYCLINE
     Indication: EPIDIDYMITIS
     Dosage: UNK
     Dates: start: 1983
  3. IBUPROFEN. [Suspect]
     Active Substance: IBUPROFEN
     Indication: TENSION HEADACHE
  4. IBUPROFEN. [Suspect]
     Active Substance: IBUPROFEN
     Indication: EPIDIDYMITIS
     Dosage: 400 MG SINGLE (400?MG IBUPROFEN TABLET)
     Route: 048
     Dates: start: 1983, end: 1983
  5. IBUPROFEN. [Suspect]
     Active Substance: IBUPROFEN
     Indication: EPIDIDYMITIS
     Dosage: UNK
     Dates: start: 1983, end: 1983

REACTIONS (2)
  - Drug hypersensitivity [Recovered/Resolved]
  - Meningitis aseptic [Recovered/Resolved]

NARRATIVE: CASE EVENT DATE: 1983
